FAERS Safety Report 4783653-8 (Version None)
Quarter: 2005Q3

REPORT INFORMATION
  Report Type: 
  Country: None (occurrence: None)
  Receive Date: 20050928
  Receipt Date: 20050920
  Transmission Date: 20060218
  Serious: Yes (Other)
  Sender: FDA-Public Use
  Company Number: 2005-09-0668

PATIENT
  Age: 56 Year
  Sex: Male
  Weight: 71 kg

DRUGS (2)
  1. NASONEX [Suspect]
     Indication: RHINITIS
     Dosage: 2 PUF/N QD NASAL SPRAY
     Route: 045
     Dates: start: 20050624, end: 20050831
  2. KARDEGIC SACHETS (ACETYLSALICYLATE LYSINE) [Concomitant]

REACTIONS (4)
  - AGEUSIA [None]
  - ANOSMIA [None]
  - NASAL DRYNESS [None]
  - TONGUE DISCOLOURATION [None]
